FAERS Safety Report 20802863 (Version 5)
Quarter: 2022Q4

REPORT INFORMATION
  Report Type: Spontaneous
  Country: US (occurrence: US)
  Receive Date: 20220509
  Receipt Date: 20221212
  Transmission Date: 20230113
  Serious: Yes (Other)
  Sender: FDA-Public Use
  Company Number: US-PFIZER INC-202200672356

PATIENT
  Age: 58 Year
  Sex: Male
  Weight: 99.79 kg

DRUGS (1)
  1. XELJANZ XR [Suspect]
     Active Substance: TOFACITINIB CITRATE
     Indication: Rheumatoid arthritis
     Dosage: 11 MG, 1X/DAY
     Route: 048
     Dates: end: 202204

REACTIONS (5)
  - Pulmonary thrombosis [Unknown]
  - Spinal operation [Unknown]
  - Skin disorder [Unknown]
  - Pain in extremity [Unknown]
  - Stress [Unknown]

NARRATIVE: CASE EVENT DATE: 20220101
